FAERS Safety Report 23205397 (Version 2)
Quarter: 2023Q4

REPORT INFORMATION
  Report Type: Spontaneous
  Country: US (occurrence: US)
  Receive Date: 20231120
  Receipt Date: 20231227
  Transmission Date: 20240110
  Serious: No
  Sender: FDA-Public Use
  Company Number: US-PFIZER INC-PV202300161148

PATIENT
  Age: 94 Year
  Sex: Female

DRUGS (1)
  1. IBRANCE [Suspect]
     Active Substance: PALBOCICLIB
     Dosage: TAKE ONE TABLET ONCE DAILY TAKEN WITH OR WITHOUT FOOD FOR 21 DAYS FOLLOWED BY 7 DAYS OFF
     Route: 048

REACTIONS (1)
  - Hypoacusis [Unknown]
